FAERS Safety Report 8313331-X (Version None)
Quarter: 2012Q2

REPORT INFORMATION
  Report Type: 
  Country: None (occurrence: None)
  Receive Date: 20120426
  Receipt Date: 20120412
  Transmission Date: 20120825
  Serious: Yes (Hospitalization)
  Sender: FDA-Public Use
  Company Number: PHHY2009JP59004

PATIENT
  Sex: Male
  Weight: 106 kg

DRUGS (10)
  1. PRIMOBOLAN-DEPOT INJ [Concomitant]
     Indication: APLASTIC ANAEMIA
     Dosage: 20 MG, UNK
     Route: 048
     Dates: start: 20090902, end: 20100126
  2. RED BLOOD CELLS, LEUCOCYTE DEPLETED [Concomitant]
     Dosage: 2 UNITS EVERY WEEKS
     Dates: start: 20090709
  3. NEORAL [Concomitant]
     Indication: APLASTIC ANAEMIA
     Dosage: 200 MG, DAILY
     Route: 048
     Dates: start: 20090512, end: 20100126
  4. NEORAL [Concomitant]
     Dosage: 300 MG, DAILY
     Route: 048
     Dates: start: 20100812, end: 20101117
  5. COTRIM [Concomitant]
     Indication: PROPHYLAXIS
     Dosage: 4 DF, UNK
     Route: 048
     Dates: start: 20090420, end: 20100126
  6. RED BLOOD CELLS, LEUCOCYTE DEPLETED [Concomitant]
     Dosage: 4 UNITS EVERY WEEK
     Dates: start: 20090410, end: 20090629
  7. EXJADE [Suspect]
     Indication: IRON OVERLOAD
     Dosage: 500 MG, BID
     Route: 048
     Dates: start: 20091216, end: 20091219
  8. NEORAL [Concomitant]
     Dosage: 250 MG, DAILY
     Route: 048
     Dates: start: 20090617, end: 20100817
  9. ITRACONAZOLE [Concomitant]
     Indication: PROPHYLAXIS
     Dosage: 200 MG, UNK
     Route: 048
     Dates: start: 20090420, end: 20100126
  10. NEORAL [Concomitant]
     Dosage: 400 MG, DAILY
     Dates: start: 20101118, end: 20101216

REACTIONS (8)
  - OESOPHAGEAL HAEMORRHAGE [None]
  - OROPHARYNGEAL DISCOMFORT [None]
  - HAEMATEMESIS [None]
  - EATING DISORDER [None]
  - OESOPHAGEAL RUPTURE [None]
  - RENAL DISORDER [None]
  - OROPHARYNGEAL PAIN [None]
  - WRONG TECHNIQUE IN DRUG USAGE PROCESS [None]
